FAERS Safety Report 23222406 (Version 2)
Quarter: 2024Q2

REPORT INFORMATION
  Report Type: Report from Study
  Country: US (occurrence: US)
  Receive Date: 20231123
  Receipt Date: 20240517
  Transmission Date: 20240716
  Serious: Yes (Death)
  Sender: FDA-Public Use
  Company Number: US-002147023-NVSC2023US249762

PATIENT
  Sex: Female

DRUGS (1)
  1. XIIDRA [Suspect]
     Active Substance: LIFITEGRAST
     Indication: Product used for unknown indication
     Dosage: 4 GTT (2 GTT,1 IN 12 HR)
     Route: 047
     Dates: start: 20200101, end: 20200828

REACTIONS (4)
  - Cardiac failure congestive [Fatal]
  - Breast cancer [Fatal]
  - Diabetes mellitus [Fatal]
  - Chronic obstructive pulmonary disease [Fatal]

NARRATIVE: CASE EVENT DATE: 20220101
